FAERS Safety Report 6172538-0 (Version None)
Quarter: 2009Q2

REPORT INFORMATION
  Report Type: 
  Country: None (occurrence: None)
  Receive Date: 20090429
  Receipt Date: 20090423
  Transmission Date: 20091009
  Serious: Yes (Hospitalization)
  Sender: FDA-Public Use
  Company Number: BE-ABBOTT-09P-013-0569704-00

PATIENT

DRUGS (8)
  1. HUMIRA [Suspect]
     Indication: RHEUMATOID ARTHRITIS
     Route: 058
     Dates: start: 20050523
  2. ZESTORETIC [Concomitant]
     Indication: DRUG USE FOR UNKNOWN INDICATION
  3. DILTIAZEM HCL [Concomitant]
     Indication: DRUG USE FOR UNKNOWN INDICATION
  4. KREDEX [Concomitant]
     Indication: DRUG USE FOR UNKNOWN INDICATION
  5. ELTHYRONE [Concomitant]
     Indication: DRUG USE FOR UNKNOWN INDICATION
  6. SERENASE [Concomitant]
     Indication: DRUG USE FOR UNKNOWN INDICATION
  7. COLCHICINE [Concomitant]
     Indication: DRUG USE FOR UNKNOWN INDICATION
  8. HYPERLIPEN [Concomitant]
     Indication: DRUG USE FOR UNKNOWN INDICATION

REACTIONS (3)
  - DYSPNOEA [None]
  - NERVOUSNESS [None]
  - STRESS [None]
